FAERS Safety Report 22377267 (Version 3)
Quarter: 2023Q2

REPORT INFORMATION
  Report Type: Spontaneous
  Country: JP (occurrence: JP)
  Receive Date: 20230529
  Receipt Date: 20230615
  Transmission Date: 20230721
  Serious: Yes (Hospitalization, Other)
  Sender: FDA-Public Use
  Company Number: JP-KYOWAKIRIN-2023AKK007362

PATIENT
  Age: 8 Decade
  Sex: Female

DRUGS (1)
  1. CINACALCET HYDROCHLORIDE [Suspect]
     Active Substance: CINACALCET HYDROCHLORIDE
     Indication: Hyperparathyroidism secondary
     Dosage: 0.5 DF
     Route: 048

REACTIONS (3)
  - Cerebral infarction [Unknown]
  - Underdose [Unknown]
  - Wrong technique in product usage process [Unknown]
